FAERS Safety Report 20134800 (Version 1)
Quarter: 2021Q4

REPORT INFORMATION
  Report Type: Spontaneous
  Country: JP (occurrence: JP)
  Receive Date: 20211201
  Receipt Date: 20211201
  Transmission Date: 20220303
  Serious: Yes (Other)
  Sender: FDA-Public Use
  Company Number: JP-TAKEDA-2021TJP124380

PATIENT
  Age: 4 Decade
  Sex: Male

DRUGS (4)
  1. AGRYLIN [Suspect]
     Active Substance: ANAGRELIDE HYDROCHLORIDE
     Indication: Essential thrombocythaemia
     Dosage: 2 MILLIGRAM, BID
     Route: 048
     Dates: start: 2021
  2. AGRYLIN [Suspect]
     Active Substance: ANAGRELIDE HYDROCHLORIDE
     Dosage: 2 MILLIGRAM /DAY
     Route: 048
     Dates: start: 2020, end: 2021
  3. AGRYLIN [Suspect]
     Active Substance: ANAGRELIDE HYDROCHLORIDE
     Dosage: 2 MILLIGRAM /DAY
     Route: 048
     Dates: start: 2021, end: 2021
  4. ASPIRIN [Suspect]
     Active Substance: ASPIRIN
     Indication: Product used for unknown indication
     Route: 065

REACTIONS (3)
  - Haemorrhagic diathesis [Recovered/Resolved]
  - Headache [Recovered/Resolved]
  - Oedema [Recovering/Resolving]

NARRATIVE: CASE EVENT DATE: 20210101
